FAERS Safety Report 9409496 (Version 2)
Quarter: 2013Q3

REPORT INFORMATION
  Report Type: Spontaneous
  Country: US (occurrence: US)
  Receive Date: 20130423
  Receipt Date: 20130815
  Transmission Date: 20140515
  Serious: Yes (Hospitalization, Other)
  Sender: FDA-Public Use
  Company Number: ADR-2013-00430

PATIENT
  Age: 45 Year
  Sex: Female

DRUGS (1)
  1. LIORESAL INTRATHECAL (BACLOFEN INJECTION) [Suspect]
     Indication: MUSCLE SPASTICITY

REACTIONS (7)
  - Burning sensation [None]
  - Dysphagia [None]
  - Pneumonia [None]
  - Aspiration [None]
  - Muscle spasticity [None]
  - Pain [None]
  - Dysphagia [None]
